FAERS Safety Report 6769642-2 (Version None)
Quarter: 2010Q2

REPORT INFORMATION
  Report Type: 
  Country: None (occurrence: None)
  Receive Date: 20100615
  Receipt Date: 20100607
  Transmission Date: 20101027
  Serious: Yes (Hospitalization)
  Sender: FDA-Public Use
  Company Number: JP-SHIRE-SPV1-2010-00497

PATIENT

DRUGS (18)
  1. LANTHANUM CARBONATE [Suspect]
     Indication: HYPERPHOSPHATAEMIA
     Dosage: 750 MG, UNK
     Route: 048
     Dates: start: 20090727
  2. RENAGEL                            /01459901/ [Concomitant]
     Indication: HYPERPHOSPHATAEMIA
     Dosage: 4500 MG, UNK
     Route: 048
     Dates: start: 20090806
  3. RENAGEL                            /01459901/ [Concomitant]
     Dosage: 6750 MG, UNK
     Route: 048
     Dates: start: 20090727, end: 20090805
  4. ROCALTROL [Concomitant]
     Dosage: .5 UG, UNK
     Route: 048
     Dates: start: 20090727
  5. CINACALCET HYDROCHLORIDE [Concomitant]
     Indication: HYPERPARATHYROIDISM SECONDARY
     Dosage: 25 MG, UNK
     Route: 048
     Dates: start: 20090727, end: 20090805
  6. BIOFERMIN [Concomitant]
     Dosage: 1 G, UNK
     Route: 048
  7. DIOVAN [Concomitant]
     Dosage: 100 MG, UNK
     Route: 048
  8. NORVASC [Concomitant]
     Dosage: 5 MG, UNK
     Route: 048
  9. SENNOSIDE                          /00571901/ [Concomitant]
     Dosage: 36 MG, UNK
     Route: 048
  10. ADALAT CC [Concomitant]
     Dosage: 20 MG, UNK
     Route: 048
  11. RIZABEN [Concomitant]
     Dosage: 200 MG, UNK
     Route: 048
  12. ZESULAN [Concomitant]
     Dosage: 12 MG, UNK
     Route: 048
  13. KINEDAK [Concomitant]
     Dosage: 150 MG, UNK
     Route: 048
  14. NESP [Concomitant]
     Dosage: 15 UG, UNK
     Route: 042
  15. FESIN [Concomitant]
     Dosage: 40 MG, UNK
     Route: 042
  16. NOVORAPID [Concomitant]
     Dosage: 24 UNITS
     Route: 058
  17. CALCIUM CARBONATE [Concomitant]
     Indication: HYPERPHOSPHATAEMIA
     Dosage: 3000 MG, UNK
     Route: 048
  18. CALCIUM CARBONATE [Concomitant]
     Dosage: 3000 MG, UNK
     Route: 048
     Dates: start: 20090727

REACTIONS (2)
  - HAEMATEMESIS [None]
  - REFLUX OESOPHAGITIS [None]
